FAERS Safety Report 8205886-0 (Version None)
Quarter: 2012Q1

REPORT INFORMATION
  Report Type: 
  Country: None (occurrence: None)
  Receive Date: 20120313
  Receipt Date: 20120305
  Transmission Date: 20120608
  Serious: Yes (Hospitalization, Other)
  Sender: FDA-Public Use
  Company Number: PHHY2012AU019989

PATIENT
  Age: 26 Year
  Sex: Male

DRUGS (1)
  1. PAROXETINE [Suspect]
     Indication: STRESS
     Dosage: UNK UKN, UNK

REACTIONS (11)
  - SELF ESTEEM DECREASED [None]
  - IMPULSIVE BEHAVIOUR [None]
  - ANGER [None]
  - OVERDOSE [None]
  - AKATHISIA [None]
  - RESTLESSNESS [None]
  - ADJUSTMENT DISORDER [None]
  - SUICIDE ATTEMPT [None]
  - SUICIDAL IDEATION [None]
  - PANIC ATTACK [None]
  - INSOMNIA [None]
